FAERS Safety Report 23990100 (Version 1)
Quarter: 2024Q2

REPORT INFORMATION
  Report Type: Spontaneous
  Country: PL (occurrence: PL)
  Receive Date: 20240619
  Receipt Date: 20240619
  Transmission Date: 20240716
  Serious: Yes (Other)
  Sender: FDA-Public Use
  Company Number: PL-AMGEN-POLSP2024116787

PATIENT
  Age: 12 Year
  Sex: Male

DRUGS (8)
  1. BLINATUMOMAB [Suspect]
     Active Substance: BLINATUMOMAB
     Indication: B-cell type acute leukaemia
     Dosage: UNK, 28-DAY CYCLE
     Route: 065
  2. THYMOGLOBULINE [Concomitant]
     Active Substance: LAPINE T-LYMPHOCYTE IMMUNE GLOBULIN
     Dosage: 3.75 MILLIGRAM/KILOGRAM, QD, FOR 4 DAYS
     Route: 065
  3. PREDNISOLONE [Concomitant]
     Active Substance: PREDNISOLONE
     Dosage: 1 MILLIGRAM/KILOGRAM, QD
     Route: 065
  4. CYCLOSPORINE [Concomitant]
     Active Substance: CYCLOSPORINE
     Dosage: 5 MILLIGRAM/KILOGRAM, QD
     Route: 065
  5. ELTROMBOPAG [Concomitant]
     Active Substance: ELTROMBOPAG
     Dosage: UNK, FOR 6 MONTHS
     Route: 065
  6. TREOSULFAN [Concomitant]
     Active Substance: TREOSULFAN
     Dosage: 42 GRAM PER SQUARE METRE
     Route: 065
  7. FLUDARABINE [Concomitant]
     Active Substance: FLUDARABINE PHOSPHATE
     Dosage: 150 MILLIGRAM/SQ. METER
     Route: 065
  8. THIOTEPA [Concomitant]
     Active Substance: THIOTEPA
     Dosage: 10 MILLIGRAM/KILOGRAM
     Route: 065

REACTIONS (1)
  - Acute graft versus host disease in skin [Unknown]
